FAERS Safety Report 8312546-4 (Version None)
Quarter: 2012Q2

REPORT INFORMATION
  Report Type: 
  Country: None (occurrence: None)
  Receive Date: 20120425
  Receipt Date: 20120414
  Transmission Date: 20120825
  Serious: Yes (Hospitalization, Other)
  Sender: FDA-Public Use
  Company Number: PHHY2012ES034331

PATIENT
  Age: 75 Year
  Sex: Female

DRUGS (4)
  1. FLUVASTATIN [Suspect]
  2. NEBIVOLOL [Suspect]
     Dosage: 5 MG/DAY
  3. IRBESARTAN AND HYDROCHLOROTHIAZIDE [Suspect]
  4. SPIRONOLACTONE [Suspect]
     Dosage: 100 MG/DAY

REACTIONS (15)
  - TACHYPNOEA [None]
  - ATRIAL FIBRILLATION [None]
  - OEDEMA PERIPHERAL [None]
  - BLOOD CREATININE INCREASED [None]
  - BRADYCARDIA [None]
  - BUNDLE BRANCH BLOCK LEFT [None]
  - BLOOD PRESSURE DECREASED [None]
  - OLIGURIA [None]
  - HYPOVENTILATION [None]
  - RENAL FAILURE ACUTE [None]
  - DYSPNOEA [None]
  - MUSCULAR WEAKNESS [None]
  - HYPERKALAEMIA [None]
  - CARDIAC FAILURE CONGESTIVE [None]
  - METABOLIC ACIDOSIS [None]
